FAERS Safety Report 24444045 (Version 2)
Quarter: 2024Q4

REPORT INFORMATION
  Report Type: Report from Study
  Country: ZA (occurrence: ZA)
  Receive Date: 20241016
  Receipt Date: 20241017
  Transmission Date: 20250114
  Serious: No
  Sender: ROCHE
  Company Number: ZA-ROCHE-2614057

PATIENT
  Sex: Male

DRUGS (2)
  1. MABTHERA [Suspect]
     Active Substance: RITUXIMAB
     Indication: Rheumatoid arthritis
     Route: 041
     Dates: start: 20201031
  2. RITUXIMAB [Suspect]
     Active Substance: RITUXIMAB
     Indication: Rheumatoid arthritis
     Dosage: RISTOVA INFUSION WAS ON 6 MONTHS AGO. REQUEST CONTINUATION OF RISTOVA 1 GRAM X 2
     Route: 042

REACTIONS (8)
  - C-reactive protein increased [Unknown]
  - Cystitis [Recovered/Resolved]
  - Blood creatinine increased [Unknown]
  - C-reactive protein increased [Unknown]
  - White blood cell count increased [Unknown]
  - Arthritis [Unknown]
  - Rheumatoid arthritis [Unknown]
  - Blood creatinine increased [Unknown]

NARRATIVE: CASE EVENT DATE: 20211021
